FAERS Safety Report 7326707-4 (Version None)
Quarter: 2011Q1

REPORT INFORMATION
  Report Type: 
  Country: None (occurrence: None)
  Receive Date: 20110302
  Receipt Date: 20100713
  Transmission Date: 20110831
  Serious: No
  Sender: FDA-Public Use
  Company Number: US-PFIZER INC-2010087879

PATIENT

DRUGS (1)
  1. VFEND [Suspect]
     Indication: WOUND
     Dosage: UNK

REACTIONS (1)
  - DRUG INEFFECTIVE [None]
